FAERS Safety Report 10179326 (Version 1)
Quarter: 2014Q2

REPORT INFORMATION
  Report Type: Spontaneous
  Country: US (occurrence: None)
  Receive Date: 20140515
  Receipt Date: 20140515
  Transmission Date: 20141212
  Serious: Yes (Other)
  Sender: FDA-Public Use
  Company Number: 201404076

PATIENT
  Age: 67 Year
  Sex: Female

DRUGS (2)
  1. XIAFLEX [Suspect]
     Indication: DUPUYTREN^S CONTRACTURE
     Dosage: 1 IN 1 D
     Dates: start: 20140305, end: 20140305
  2. XIAFLEX [Suspect]
     Indication: PEYRONIE^S DISEASE
     Dosage: 1 IN 1 D
     Dates: start: 20140305, end: 20140305

REACTIONS (4)
  - Pain in extremity [None]
  - Post procedural haemorrhage [None]
  - Peripheral swelling [None]
  - Haematoma [None]
